FAERS Safety Report 12733514 (Version 3)
Quarter: 2016Q4

REPORT INFORMATION
  Report Type: Spontaneous
  Country: JP (occurrence: JP)
  Receive Date: 20160912
  Receipt Date: 20161027
  Transmission Date: 20170207
  Serious: Yes (Hospitalization)
  Sender: FDA-Public Use
  Company Number: JP-GILEAD-2016-0232126

PATIENT
  Age: 74 Year
  Sex: Male
  Weight: 67.9 kg

DRUGS (8)
  1. PANALDINE [Concomitant]
     Active Substance: TICLOPIDINE HYDROCHLORIDE
     Dosage: 100 MG, BID, IN THE MORNING AND EVENING
     Route: 048
  2. AMLODIPINE [Concomitant]
     Active Substance: AMLODIPINE BESYLATE
     Dosage: 10 MG, QD, IN THE MORNING
     Route: 048
  3. ALFAROL [Concomitant]
     Active Substance: ALFACALCIDOL
     Dosage: 1 UG, QD, IN THE MORNING
     Route: 048
  4. URSO [Concomitant]
     Active Substance: URSODIOL
     Dosage: 100 MG, TID, , AFTER EVERY MEALS
     Route: 048
  5. ZOLPIDEM [Concomitant]
     Active Substance: ZOLPIDEM\ZOLPIDEM TARTRATE
     Dosage: 10 MG, QHS
     Route: 048
  6. HARVONI [Suspect]
     Active Substance: LEDIPASVIR\SOFOSBUVIR
     Indication: CHRONIC HEPATITIS C
     Dosage: 1 DF, UNK
     Route: 048
     Dates: start: 20160721
  7. NATRIX [Suspect]
     Active Substance: INDAPAMIDE
     Indication: THROMBOSIS PROPHYLAXIS
     Dosage: 0.5 MG, QD, IN THE MORNING
     Route: 048
     Dates: start: 2012, end: 20160901
  8. SENNOSIDE                          /00571901/ [Concomitant]
     Active Substance: SENNOSIDES A AND B
     Dosage: 12 MG, QHS
     Route: 048

REACTIONS (2)
  - Blood creatinine increased [Unknown]
  - Blood uric acid increased [Recovering/Resolving]

NARRATIVE: CASE EVENT DATE: 20160816
